FAERS Safety Report 6377342-6 (Version None)
Quarter: 2009Q3

REPORT INFORMATION
  Report Type: 
  Country: None (occurrence: None)
  Receive Date: 20090925
  Receipt Date: 20090917
  Transmission Date: 20100115
  Serious: Yes (Other)
  Sender: FDA-Public Use
  Company Number: US-PFIZER INC-2007013801

PATIENT
  Sex: Male

DRUGS (2)
  1. XALATAN [Suspect]
     Dates: start: 20040101
  2. XAL-EASE [Suspect]

REACTIONS (3)
  - CATARACT OPERATION [None]
  - DEVICE INEFFECTIVE [None]
  - TREMOR [None]
